FAERS Safety Report 4959086-8 (Version None)
Quarter: 2006Q1

REPORT INFORMATION
  Report Type: 
  Country: None (occurrence: None)
  Receive Date: 20060330
  Receipt Date: 20060330
  Transmission Date: 20060701
  Serious: Yes (Other)
  Sender: FDA-Public Use
  Company Number: None

PATIENT
  Age: 10 Year
  Sex: Male
  Weight: 29.4838 kg

DRUGS (1)
  1. AUGMENTIN '125' [Suspect]
     Indication: SINUSITIS
     Dosage: 1 TABLET TWICE A DAY PO
     Route: 048
     Dates: start: 20060313, end: 20060327

REACTIONS (4)
  - ABNORMAL BEHAVIOUR [None]
  - AGGRESSION [None]
  - ANGER [None]
  - IRRITABILITY [None]
